FAERS Safety Report 19101974 (Version 1)
Quarter: 2021Q2

REPORT INFORMATION
  Report Type: Spontaneous
  Country: CH (occurrence: CH)
  Receive Date: 20210407
  Receipt Date: 20210407
  Transmission Date: 20210717
  Serious: Yes (Disabling)
  Sender: FDA-Public Use
  Company Number: CH-TEVA-2021-CH-1896183

PATIENT
  Age: 59 Year
  Sex: Male
  Weight: 94 kg

DRUGS (11)
  1. MEPHAMESON [Suspect]
     Active Substance: DEXAMETHASONE
     Route: 042
  2. PERFALGAN [Suspect]
     Active Substance: ACETAMINOPHEN
     Route: 042
  3. OXYCONTIN [Suspect]
     Active Substance: OXYCODONE HYDROCHLORIDE
     Dosage: 10 MG, SLOW?RELEASE
     Route: 048
  4. LYSTHENON [Suspect]
     Active Substance: SUCCINYLCHOLINE CHLORIDE
     Dosage: 100 MG/5 ML
     Route: 042
     Dates: start: 20131219, end: 20131219
  5. PROPOFOL. [Suspect]
     Active Substance: PROPOFOL
     Dosage: 200 MG
     Route: 042
     Dates: start: 20131219, end: 20131219
  6. ULTIVA [Suspect]
     Active Substance: REMIFENTANIL HYDROCHLORIDE
     Dosage: IN TOTAL, 2 MG,
     Route: 042
     Dates: start: 20131219, end: 20131219
  7. RAPIFEN (ALFENTANIL HYDROCHLORIDE) [Suspect]
     Active Substance: ALFENTANIL HYDROCHLORIDE
     Dosage: IN TOTAL, 1MG
     Route: 042
     Dates: start: 20131219, end: 20131219
  8. EPHEDRIN [Suspect]
     Active Substance: EPHEDRINE HYDROCHLORIDE
     Dosage: 50 MG/5 ML
     Route: 042
     Dates: start: 20131219, end: 20131219
  9. FRAXIPARINE [Suspect]
     Active Substance: NADROPARIN CALCIUM
     Dosage: 0.3 ML
     Route: 058
  10. NOVALGIN (METAMIZOLE SODIUM) [Suspect]
     Active Substance: METAMIZOLE SODIUM
     Route: 042
  11. ATROPINUM SULFURICUM [Suspect]
     Active Substance: ATROPINE SULFATE
     Route: 042

REACTIONS (1)
  - Polyneuropathy [Not Recovered/Not Resolved]

NARRATIVE: CASE EVENT DATE: 20131220
